FAERS Safety Report 23625909 (Version 1)
Quarter: 2024Q1

REPORT INFORMATION
  Report Type: Spontaneous
  Country: NL (occurrence: NL)
  Receive Date: 20240313
  Receipt Date: 20240313
  Transmission Date: 20240410
  Serious: Yes (Other)
  Sender: FDA-Public Use
  Company Number: NL-002147023-NVSC2024NL052403

PATIENT
  Sex: Female
  Weight: 69 kg

DRUGS (1)
  1. CARBAMAZEPINE [Suspect]
     Active Substance: CARBAMAZEPINE
     Indication: Trigeminal neuralgia
     Dosage: 300 MG, BID (INCREASED FROM INITIAL 100MG 1X/DAY)
     Route: 048
     Dates: start: 20240228, end: 20240301

REACTIONS (4)
  - Malaise [Recovered/Resolved]
  - Pyrexia [Recovered/Resolved]
  - Rash pruritic [Recovered/Resolved]
  - Lymphadenopathy [Recovered/Resolved]
